FAERS Safety Report 10231230 (Version 1)
Quarter: 2014Q2

REPORT INFORMATION
  Report Type: Spontaneous
  Country: US (occurrence: None)
  Receive Date: 20140506
  Receipt Date: 20140506
  Transmission Date: 20141212
  Serious: Yes (Other)
  Sender: FDA-Public Use
  Company Number: 1287215

PATIENT
  Age: 85 Year
  Sex: Female
  Weight: 49.44 kg

DRUGS (4)
  1. AVASTIN [Suspect]
     Indication: COLORECTAL CANCER METASTATIC
     Route: 042
     Dates: start: 20130911, end: 20131003
  2. FLUOROURACIL [Suspect]
     Indication: COLON CANCER
     Dosage: 4230 UNIT NOT REPORTED, INTRAVENOUS (NOT OTHERWISE SPECIFIED)
     Route: 042
     Dates: start: 20130911
  3. LEUCOVORIN (CALCIUM FOLINATE) [Concomitant]
  4. PALONOSETRON (PALONOSETRON) [Concomitant]

REACTIONS (2)
  - Gastrointestinal perforation [None]
  - Intestinal perforation [None]
